FAERS Safety Report 7472720-6 (Version None)
Quarter: 2011Q1

REPORT INFORMATION
  Report Type: 
  Country: None (occurrence: None)
  Receive Date: 20110302
  Receipt Date: 20100701
  Transmission Date: 20110831
  Serious: Yes (Hospitalization)
  Sender: FDA-Public Use
  Company Number: 163-21880-10070103

PATIENT
  Age: 71 Year
  Sex: Female

DRUGS (2)
  1. ATIVAN [Suspect]
     Indication: PRODUCT USED FOR UNKNOWN INDICATION
  2. REVLIMID [Suspect]
     Indication: MULTIPLE MYELOMA
     Dosage: 15 MG, QD X 21 DAYS, PO
     Route: 048
     Dates: start: 20100605, end: 20100629

REACTIONS (2)
  - ASTHENIA [None]
  - ACCIDENTAL OVERDOSE [None]
